FAERS Safety Report 12635581 (Version 2)
Quarter: 2016Q3

REPORT INFORMATION
  Report Type: Spontaneous
  Country: US (occurrence: US)
  Receive Date: 20160809
  Receipt Date: 20160813
  Transmission Date: 20161109
  Serious: No
  Sender: FDA-Public Use
  Company Number: US-009507513-1608USA000563

PATIENT
  Age: 21 Year
  Sex: Female
  Weight: 62.13 kg

DRUGS (1)
  1. NEXPLANON [Suspect]
     Active Substance: ETONOGESTREL
     Indication: CONTRACEPTION
     Dosage: DOSE/FREQUENCY REPORTED AS: 1 IMPLANT EVERY 3 YEARS
     Route: 059
     Dates: start: 20160217

REACTIONS (5)
  - Pruritus genital [Unknown]
  - Implant site pain [Unknown]
  - Menstruation delayed [Not Recovered/Not Resolved]
  - Coital bleeding [Unknown]
  - Vaginal infection [Unknown]

NARRATIVE: CASE EVENT DATE: 2016
